FAERS Safety Report 18876939 (Version 1)
Quarter: 2021Q1

REPORT INFORMATION
  Report Type: Other
  Country: IN (occurrence: IN)
  Receive Date: 20210211
  Receipt Date: 20210211
  Transmission Date: 20210420
  Serious: Yes (Hospitalization)
  Sender: FDA-Public Use
  Company Number: IN-NAARI PTE LIMITED-2106613

PATIENT
  Age: 24 Year
  Sex: Female

DRUGS (1)
  1. NORETHINDRONE. [Suspect]
     Active Substance: NORETHINDRONE
     Indication: MENORRHAGIA
     Route: 065

REACTIONS (2)
  - Autoimmune dermatitis [Recovering/Resolving]
  - Hepatitis cholestatic [Recovering/Resolving]
